FAERS Safety Report 5618461-9 (Version None)
Quarter: 2008Q1

REPORT INFORMATION
  Report Type: 
  Country: None (occurrence: None)
  Receive Date: 20080207
  Receipt Date: 20080201
  Transmission Date: 20080703
  Serious: Yes (Hospitalization)
  Sender: FDA-Public Use
  Company Number: A0706715A

PATIENT
  Age: 79 Year
  Sex: Female
  Weight: 58.5 kg

DRUGS (9)
  1. ROSIGLITAZONE [Suspect]
     Dosage: 8MG PER DAY
     Route: 048
     Dates: start: 20070313, end: 20080128
  2. TARDYFERON [Concomitant]
     Dosage: 80MG TWICE PER DAY
     Route: 048
  3. EFFEXOR [Concomitant]
     Indication: DEPRESSION
     Dosage: 50MG TWICE PER DAY
     Route: 048
  4. ACTONEL [Concomitant]
     Indication: OSTEOPOROSIS
     Dosage: 35MG WEEKLY
     Route: 048
  5. ARICEPT [Concomitant]
     Dosage: 10MG PER DAY
     Route: 048
  6. CHONDROSULF [Concomitant]
     Route: 048
  7. OROCAL D3 [Concomitant]
     Indication: OSTEOPOROSIS
     Dosage: 500MG PER DAY
     Route: 048
     Dates: start: 20070918
  8. PARACETAMOL [Concomitant]
     Route: 048
  9. NEXIUM [Concomitant]
     Indication: PROPHYLAXIS
     Dates: start: 20071124

REACTIONS (8)
  - CEREBRAL HAEMATOMA [None]
  - CONJUNCTIVAL HAEMORRHAGE [None]
  - CONTUSION [None]
  - EPILEPSY [None]
  - FALL [None]
  - HEAD INJURY [None]
  - LOSS OF CONSCIOUSNESS [None]
  - TARDIVE DYSKINESIA [None]
